FAERS Safety Report 20036658 (Version 1)
Quarter: 2021Q4

REPORT INFORMATION
  Report Type: Spontaneous
  Country: US (occurrence: US)
  Receive Date: 20211105
  Receipt Date: 20211105
  Transmission Date: 20220303
  Serious: No
  Sender: FDA-Public Use
  Company Number: US-GSKCCFUS-Case-01206737_AE-70659

PATIENT
  Sex: Female

DRUGS (1)
  1. BENLYSTA [Suspect]
     Active Substance: BELIMUMAB
     Indication: Systemic lupus erythematosus
     Dosage: UNK
     Dates: start: 20210817

REACTIONS (6)
  - Anxiety [Unknown]
  - Nervousness [Unknown]
  - Feeling jittery [Unknown]
  - Nausea [Unknown]
  - Swelling [Unknown]
  - Arthralgia [Unknown]
